FAERS Safety Report 7582352-7 (Version None)
Quarter: 2011Q2

REPORT INFORMATION
  Report Type: 
  Country: None (occurrence: None)
  Receive Date: 20110630
  Receipt Date: 20110623
  Transmission Date: 20111010
  Serious: Yes (Hospitalization, Other)
  Sender: FDA-Public Use
  Company Number: US-JNJFOC-20100804662

PATIENT
  Sex: Female

DRUGS (2)
  1. LEVAQUIN [Suspect]
     Indication: PRODUCT USED FOR UNKNOWN INDICATION
     Route: 048
  2. LEVOFLOXACIN [Suspect]
     Indication: COUGH
     Route: 048

REACTIONS (3)
  - TENDON DISORDER [None]
  - TENDON RUPTURE [None]
  - TENOSYNOVITIS [None]
